FAERS Safety Report 24103172 (Version 1)
Quarter: 2024Q3

REPORT INFORMATION
  Report Type: Report from Study
  Country: US (occurrence: US)
  Receive Date: 20240717
  Receipt Date: 20240717
  Transmission Date: 20241017
  Serious: Yes (Other)
  Sender: TAKEDA
  Company Number: US-TAKEDA-2024TUS048301

PATIENT
  Sex: Male
  Weight: 91 kg

DRUGS (2)
  1. MARIBAVIR [Suspect]
     Active Substance: MARIBAVIR
     Indication: Cytomegalovirus infection
     Dosage: 400 MILLIGRAM, BID
     Route: 048
     Dates: start: 20240514
  2. MARIBAVIR [Suspect]
     Active Substance: MARIBAVIR
     Dosage: 400 MILLIGRAM, BID
     Route: 065

REACTIONS (5)
  - Cytomegalovirus infection reactivation [Unknown]
  - Cough [Recovered/Resolved]
  - Anxiety [Unknown]
  - Weight decreased [Unknown]
  - Ageusia [Unknown]
